FAERS Safety Report 17788321 (Version 1)
Quarter: 2020Q2

REPORT INFORMATION
  Report Type: Spontaneous
  Country: US (occurrence: US)
  Receive Date: 20200514
  Receipt Date: 20200514
  Transmission Date: 20200714
  Serious: Yes (Hospitalization, Other)
  Sender: FDA-Public Use
  Company Number: US-GLAXOSMITHKLINE-US2020GSK078899

PATIENT
  Age: 77 Year
  Sex: Female

DRUGS (1)
  1. VALACYCLOVIR [Suspect]
     Active Substance: VALACYCLOVIR HYDROCHLORIDE
     Indication: HERPES ZOSTER
     Dosage: UNK UNK, TID

REACTIONS (11)
  - Confusional state [Recovered/Resolved]
  - Skin lesion [Recovered/Resolved]
  - Nystagmus [Recovered/Resolved]
  - Encephalopathy [Recovered/Resolved]
  - Scab [Recovered/Resolved]
  - Renal impairment [Recovered/Resolved]
  - Dysarthria [Recovered/Resolved]
  - Erythema [Recovered/Resolved]
  - Neurotoxicity [Recovered/Resolved]
  - Ataxia [Recovered/Resolved]
  - Extra dose administered [Unknown]
